FAERS Safety Report 6262994-1 (Version None)
Quarter: 2009Q3

REPORT INFORMATION
  Report Type: 
  Country: None (occurrence: None)
  Receive Date: 20090710
  Receipt Date: 20071002
  Transmission Date: 20100115
  Serious: Yes (Other)
  Sender: FDA-Public Use
  Company Number: US-ASTRAZENECA-2006UW21004

PATIENT
  Age: 18935 Day
  Sex: Male

DRUGS (18)
  1. SEROQUEL [Suspect]
     Indication: DEPRESSION
     Dosage: 50 MG - 100 MG TID
     Route: 048
     Dates: start: 20000101, end: 20040101
  2. SEROQUEL [Suspect]
     Indication: STRESS
     Dosage: 50 MG - 100 MG TID
     Route: 048
     Dates: start: 20000101, end: 20040101
  3. SEROQUEL [Suspect]
     Indication: BIPOLAR DISORDER
     Dosage: 50 MG - 100 MG TID
     Route: 048
     Dates: start: 20000101, end: 20040101
  4. SEROQUEL [Suspect]
     Dosage: 50MG-100MG
     Route: 048
     Dates: start: 20020801
  5. SEROQUEL [Suspect]
     Dosage: 50MG-100MG
     Route: 048
     Dates: start: 20020801
  6. SEROQUEL [Suspect]
     Dosage: 50MG-100MG
     Route: 048
     Dates: start: 20020801
  7. RISPERDAL [Concomitant]
     Dates: start: 20050101
  8. WELLBUTRIN [Concomitant]
     Dates: start: 20010101
  9. METHADONE [Concomitant]
  10. PERCOCET [Concomitant]
  11. CELEBREX [Concomitant]
  12. PROTONIX [Concomitant]
  13. AMBIEN [Concomitant]
  14. ALPRAZOLAM [Concomitant]
  15. LISINOPRIL [Concomitant]
  16. CARBATROL [Concomitant]
  17. METFORMIN HCL [Concomitant]
  18. LOPRESSOR [Concomitant]

REACTIONS (4)
  - CEREBROVASCULAR ACCIDENT [None]
  - DIABETES MELLITUS [None]
  - DIABETIC NEUROPATHY [None]
  - TYPE 2 DIABETES MELLITUS [None]
